FAERS Safety Report 8935518 (Version 1)
Quarter: 2012Q4

REPORT INFORMATION
  Report Type: 
  Country: US (occurrence: None)
  Receive Date: 20121128
  Receipt Date: 20121128
  Transmission Date: 20130627
  Serious: Yes (Hospitalization)
  Sender: FDA-Public Use
  Company Number: None

PATIENT
  Sex: Female
  Weight: 94 kg

DRUGS (2)
  1. ALFA 2 INTERFERON 2B (INTRON-A) [Suspect]
     Dosage: 27 mU
     Dates: end: 20121110
  2. SANDOSTATIN [Suspect]
     Dosage: 20 mg
     Dates: end: 20121023

REACTIONS (2)
  - Cardiac arrest [None]
  - Arterial occlusive disease [None]
